FAERS Safety Report 23224516 (Version 1)
Quarter: 2023Q4

REPORT INFORMATION
  Report Type: Spontaneous
  Country: CA (occurrence: CA)
  Receive Date: 20231124
  Receipt Date: 20231124
  Transmission Date: 20240110
  Serious: Yes (Other)
  Sender: FDA-Public Use
  Company Number: CA-CHEPLA-2023014720

PATIENT

DRUGS (15)
  1. CLONAZEPAM [Suspect]
     Active Substance: CLONAZEPAM
     Indication: Product used for unknown indication
     Dosage: AT NIGHT?DAILY DOSE: 0.5 MILLIGRAM
     Route: 048
  2. REBIF [Concomitant]
     Active Substance: INTERFERON BETA-1A
     Dates: start: 2011, end: 2018
  3. COPAXONE [Concomitant]
     Active Substance: GLATIRAMER ACETATE
     Dates: start: 2001, end: 2011
  4. TECFIDERA [Concomitant]
     Active Substance: DIMETHYL FUMARATE
     Dosage: FREQ: BID MORNING AND EVENING?DAILY DOSE: 480 MILLIGRAM
     Dates: start: 2018, end: 2023
  5. CONCERTA [Concomitant]
     Active Substance: METHYLPHENIDATE HYDROCHLORIDE
     Dosage: DAILY DOSE: 81 MILLIGRAM
  6. MODAFINIL [Concomitant]
     Active Substance: MODAFINIL
     Dosage: DAILY DOSE: 200 MILLIGRAM
  7. NAPROXEN [Concomitant]
     Active Substance: NAPROXEN
     Dosage: AS NEEDED IN EVENING?DAILY DOSE: 500 MILLIGRAM
  8. CIPRALEX [Concomitant]
     Active Substance: ESCITALOPRAM OXALATE
     Dosage: DAILY DOSE: 10 MILLIGRAM
  9. VITAMIN D [Concomitant]
     Active Substance: VITAMIN D NOS
  10. Pfizer [Concomitant]
     Dates: start: 20210402
  11. Pfizer [Concomitant]
     Dates: start: 20210612
  12. Pfizer [Concomitant]
     Dates: start: 20211019
  13. Pfizer [Concomitant]
     Dates: start: 20220824
  14. INFLUENZA VIRUS VACCINE [Concomitant]
     Active Substance: INFLUENZA VIRUS VACCINE
     Dates: start: 20231015
  15. Prevnar-20 [Concomitant]
     Dates: start: 20231015

REACTIONS (9)
  - Relapsing-remitting multiple sclerosis [Unknown]
  - Wolff-Parkinson-White syndrome [Unknown]
  - Haemochromatosis [Unknown]
  - Attention deficit hyperactivity disorder [Unknown]
  - Anxiety [Unknown]
  - Depression [Unknown]
  - Blood pressure increased [Unknown]
  - Restless legs syndrome [Unknown]
  - Red blood cell count increased [Unknown]

NARRATIVE: CASE EVENT DATE: 20000101
